FAERS Safety Report 7582774-4 (Version None)
Quarter: 2011Q2

REPORT INFORMATION
  Report Type: 
  Country: None (occurrence: None)
  Receive Date: 20110627
  Receipt Date: 20110627
  Transmission Date: 20111010
  Serious: No
  Sender: FDA-Public Use
  Company Number: None

PATIENT
  Age: 71 Year
  Sex: Female
  Weight: 72.5755 kg

DRUGS (1)
  1. CLONAZEPAM [Suspect]
     Indication: ANXIETY
     Dosage: 1 DAILY TWICE A DAY PO
     Route: 048
     Dates: start: 20100103, end: 20110626

REACTIONS (1)
  - THROAT IRRITATION [None]
